FAERS Safety Report 4486535-4 (Version None)
Quarter: 2004Q4

REPORT INFORMATION
  Report Type: 
  Country: None (occurrence: None)
  Receive Date: 20041021
  Receipt Date: 20041011
  Transmission Date: 20050328
  Serious: Yes (Life-Threatening)
  Sender: FDA-Public Use
  Company Number: STA-AE-04-MTX-391

PATIENT
  Age: 74 Year
  Sex: Female

DRUGS (18)
  1. RHEUMATREX [Suspect]
     Indication: RHEUMATOID ARTHRITIS
     Dosage: 4 MG 1X PER 1 WK, ORAL
     Route: 048
     Dates: start: 20040715, end: 20040806
  2. FAMOTIDINE [Suspect]
     Indication: GASTRIC ULCER
     Dosage: 40 MG 1X PER 1 DAY, ORAL
     Route: 048
     Dates: start: 20040621, end: 20040623
  3. LOXONIN (LOXOPROFEN SODIUM, ) [Suspect]
     Indication: RHEUMATOID ARTHRITIS
     Dosage: 120 MG 1X PER 1 DAY, ORAL
     Route: 048
     Dates: end: 20040811
  4. METALCAPTASE (PENICFILLAMINE, ) [Suspect]
     Indication: RHEUMATOID ARTHRITIS
     Dosage: 100 MG 1X PER 1 DAY, ORAL
     Route: 048
     Dates: end: 20040811
  5. ENALAPRIL MALEATE [Suspect]
     Indication: HYPERTENSION
     Dosage: 5MG 1XPER DAY,ORAL
     Route: 048
     Dates: start: 20040608, end: 20040630
  6. ROCALTROL [Suspect]
     Indication: RHEUMATOID ARTHRITIS
     Dosage: 0.5 UG 1X PER 1 DAY, ORAL
     Route: 048
     Dates: end: 20040811
  7. SELBEX (TEPRENONE, ) [Suspect]
     Indication: GASTRIC ULCER
     Dosage: 150 TO 300 MG DAILY, ORAL
     Route: 048
     Dates: end: 20040811
  8. LANSOPRAZOLE [Suspect]
     Dosage: 30 MG 1X PER 1 DAY, ORAL
     Route: 048
     Dates: start: 20040622, end: 20040811
  9. ROCALTROL [Concomitant]
  10. METALCAPASE (PENICILLAMINE) [Concomitant]
  11. LOXONIN (LOXOPROFEN SODIUM) [Concomitant]
  12. SELBEX (TEPRENONE) [Concomitant]
  13. ENALAPRIL MALEATE [Concomitant]
  14. FLUMARIN (FLOMOXEF SODIUM) [Concomitant]
  15. LANSOPRAZOLE [Concomitant]
  16. GASTER (FAMOTIDINE) [Concomitant]
  17. FLUMARIN (FLOXOMEF SODIUM) [Concomitant]
  18. MODACIN (CEFTAZIDIME) [Concomitant]

REACTIONS (9)
  - ABDOMINAL PAIN UPPER [None]
  - AGRANULOCYTOSIS [None]
  - ANOREXIA [None]
  - DISSEMINATED INTRAVASCULAR COAGULATION [None]
  - DRUG HYPERSENSITIVITY [None]
  - HAEMORRHAGIC DIATHESIS [None]
  - MELAENA [None]
  - PANCYTOPENIA [None]
  - PYREXIA [None]
